FAERS Safety Report 7078918-3 (Version None)
Quarter: 2010Q4

REPORT INFORMATION
  Report Type: 
  Country: None (occurrence: None)
  Receive Date: 20101102
  Receipt Date: 20101028
  Transmission Date: 20110411
  Serious: Yes (Other)
  Sender: FDA-Public Use
  Company Number: FR-PFIZER INC-2010137157

PATIENT
  Sex: Female

DRUGS (1)
  1. CELEBREX [Suspect]
     Indication: EAR PAIN
     Dosage: 200 MG, SINGLE TABLET
     Dates: start: 20101009, end: 20101009

REACTIONS (1)
  - ANGIOEDEMA [None]
